FAERS Safety Report 8991169 (Version 1)
Quarter: 2012Q4

REPORT INFORMATION
  Report Type: Spontaneous
  Country: US (occurrence: None)
  Receive Date: 20121219
  Receipt Date: 20121219
  Transmission Date: 20130627
  Serious: Yes (Other)
  Sender: FDA-Public Use
  Company Number: 2012MA013920

PATIENT
  Sex: Male

DRUGS (1)
  1. ALLERGY CREAM WITH ZINC ACETATE (ALPHRM) [Suspect]
     Indication: ITCH
     Route: 061
     Dates: start: 20121209, end: 20121209

REACTIONS (3)
  - Drug hypersensitivity [None]
  - Pruritus [None]
  - Condition aggravated [None]
